FAERS Safety Report 8171780-7 (Version None)
Quarter: 2012Q1

REPORT INFORMATION
  Report Type: 
  Country: None (occurrence: None)
  Receive Date: 20120228
  Receipt Date: 20120224
  Transmission Date: 20120608
  Serious: Yes (Other)
  Sender: FDA-Public Use
  Company Number: US-GLAXOSMITHKLINE-A0967388A

PATIENT
  Age: 41 Year
  Sex: Male

DRUGS (4)
  1. UNSPECIFIED MEDICATION [Concomitant]
  2. ADVAIR DISKUS 100/50 [Suspect]
     Indication: PULMONARY FIBROSIS
     Dosage: 1PUFF TWICE PER DAY
     Route: 055
     Dates: start: 20120126
  3. PREDNISONE [Concomitant]
  4. TESTOSTERONE [Concomitant]

REACTIONS (6)
  - HYPERTENSION [None]
  - HEADACHE [None]
  - ANGINA PECTORIS [None]
  - HEART RATE INCREASED [None]
  - PAIN IN EXTREMITY [None]
  - BLOOD GLUCOSE INCREASED [None]
